FAERS Safety Report 16716733 (Version 6)
Quarter: 2021Q2

REPORT INFORMATION
  Report Type: Spontaneous
  Country: GB (occurrence: GB)
  Receive Date: 20190819
  Receipt Date: 20210419
  Transmission Date: 20210716
  Serious: Yes (Other)
  Sender: FDA-Public Use
  Company Number: GB-MYLANLABS-2018M1073640

PATIENT
  Age: 46 Year
  Sex: Female
  Weight: 72 kg

DRUGS (1)
  1. CLOZARIL [Suspect]
     Active Substance: CLOZAPINE
     Indication: SCHIZOPHRENIA
     Dosage: UNK
     Route: 048
     Dates: start: 20180927

REACTIONS (12)
  - Blood urea decreased [Recovered/Resolved]
  - Blood bilirubin decreased [Unknown]
  - Lymphocyte count decreased [Not Recovered/Not Resolved]
  - Blood potassium decreased [Recovered/Resolved]
  - Blood triglycerides increased [Unknown]
  - Red blood cell count decreased [Recovering/Resolving]
  - Haematocrit decreased [Recovered/Resolved]
  - Anaemia [Recovered/Resolved]
  - Non-high-density lipoprotein cholesterol increased [Unknown]
  - White blood cell count decreased [Recovered/Resolved]
  - Cervix carcinoma [Recovered/Resolved]
  - Differential white blood cell count abnormal [Not Recovered/Not Resolved]

NARRATIVE: CASE EVENT DATE: 20181003
